FAERS Safety Report 4285894-5 (Version None)
Quarter: 2004Q1

REPORT INFORMATION
  Report Type: 
  Country: None (occurrence: None)
  Receive Date: 20040203
  Receipt Date: 20040122
  Transmission Date: 20041129
  Serious: Yes (Death)
  Sender: FDA-Public Use
  Company Number: 2004-DE-00373GD

PATIENT
  Age: 2 Month
  Sex: Male

DRUGS (3)
  1. DIPYRIDAMOLE [Suspect]
     Indication: HAEMANGIOMA-THROMBOCYTOPENIA SYNDROME
     Dosage: 5 MG/KG/DAY PO
     Route: 048
  2. PREDNISOLONE [Suspect]
     Indication: HAEMANGIOMA-THROMBOCYTOPENIA SYNDROME
     Dosage: 3 MG/KG/DAY IN TWO TO THREE DIVIDED DOSES (NR); 5 MG/KG/DAY PO
     Route: 048
  3. INTERFERON ALPHA 2B (INTERFERON ALFA-2B) (NR) [Suspect]
     Indication: HAEMANGIOMA-THROMBOCYTOPENIA SYNDROME
     Dosage: 3 MILLION IU/M2 ONCE DAILY (NR) SC
     Route: 058

REACTIONS (3)
  - DRUG INEFFECTIVE [None]
  - HYPERTENSION [None]
  - PNEUMONIA ASPIRATION [None]
